FAERS Safety Report 8792075 (Version 3)
Quarter: 2012Q4

REPORT INFORMATION
  Report Type: Report from Study
  Country: US (occurrence: US)
  Receive Date: 20120918
  Receipt Date: 20121010
  Transmission Date: 20130627
  Serious: Yes (Death, Other)
  Sender: FDA-Public Use
  Company Number: US-ABBOTT-12P-163-0979712-00

PATIENT
  Age: 77 None
  Sex: Female
  Weight: 109.87 kg

DRUGS (14)
  1. HUMIRA PEN [Suspect]
     Indication: PSORIATIC ARTHROPATHY
     Dosage: As directed
     Route: 058
     Dates: start: 2009, end: 201209
  2. HUMIRA PEN [Suspect]
     Indication: PSORIASIS
  3. DERMA-SMOOTHE-FS BODY OIL [Concomitant]
     Indication: PRODUCT USED FOR UNKNOWN INDICATION
  4. TACLONEX [Concomitant]
     Indication: PRODUCT USED FOR UNKNOWN INDICATION
     Dosage: Ointment
  5. CAPTOPRIL [Concomitant]
     Indication: HYPERTENSION
  6. DIAZIDE [Concomitant]
     Indication: HYPERTENSION
  7. LEVOTHYROXINE [Concomitant]
     Indication: PRODUCT USED FOR UNKNOWN INDICATION
  8. NEXIUM [Concomitant]
     Indication: PRODUCT USED FOR UNKNOWN INDICATION
  9. HUMULIN INSULIN [Concomitant]
     Indication: DIABETES MELLITUS
  10. HUMULOG INSULIN [Concomitant]
     Indication: DIABETES MELLITUS
  11. SERTRALINE [Concomitant]
     Indication: PRODUCT USED FOR UNKNOWN INDICATION
  12. HYDROCODONE [Concomitant]
     Indication: NEUROPATHY PERIPHERAL
  13. PSORIASIS CREAM [Concomitant]
     Indication: PSORIASIS
  14. BOWEL PREP [Concomitant]
     Indication: COLONOSCOPY
     Dates: start: 20120904

REACTIONS (10)
  - Acute respiratory failure [Fatal]
  - Bacteraemia [Fatal]
  - Peripheral vascular disorder [Recovered/Resolved]
  - Gallbladder disorder [Recovered/Resolved]
  - Skin ulcer [Not Recovered/Not Resolved]
  - Myocardial infarction [Fatal]
  - Enzyme abnormality [Fatal]
  - Oedema [Fatal]
  - Pyrexia [Fatal]
  - Cardiac failure congestive [Recovered/Resolved]
